FAERS Safety Report 7630556-7 (Version None)
Quarter: 2011Q3

REPORT INFORMATION
  Report Type: 
  Country: None (occurrence: None)
  Receive Date: 20110722
  Receipt Date: 20100528
  Transmission Date: 20111222
  Serious: Yes (Hospitalization, Disabling, Other)
  Sender: FDA-Public Use
  Company Number: US-BAYER-201010922NA

PATIENT
  Age: 38 Year
  Sex: Female
  Weight: 57.6 kg

DRUGS (35)
  1. OMNISCAN [Suspect]
     Indication: ANGIOGRAM
     Dates: start: 20040511, end: 20040511
  2. CONTRAST MEDIA [Suspect]
     Dates: start: 20040801, end: 20040801
  3. COUMADIN [Concomitant]
     Dosage: 5 MG (DAILY DOSE), , ORAL
     Route: 048
     Dates: start: 20040515
  4. ASCORBIC ACID [Concomitant]
     Dosage: 1 NOT APPLICABLE (DAILY DOSE), , ORAL
     Route: 048
  5. HEPARIN [Concomitant]
     Dosage: 25000U/500 ML D5W
     Route: 042
     Dates: start: 20040514
  6. PROCRIT [Concomitant]
     Dosage: 9500 U (DAILY DOSE), , INTRAVENOUS
     Route: 042
     Dates: start: 20040514
  7. OPTIMARK [Suspect]
     Indication: ANGIOGRAM
  8. MAGNEVIST [Suspect]
     Indication: ANGIOGRAM
  9. ANALGESICS [Concomitant]
     Indication: PAIN
  10. PREDNISONE [Concomitant]
  11. MAGNESIUM [Concomitant]
  12. RENAGEL [Concomitant]
  13. ZONEGRAN [Concomitant]
  14. ZEMPLAR [Concomitant]
  15. OMNISCAN [Suspect]
     Indication: FISTULOGRAM
     Dates: start: 20040831, end: 20040831
  16. PROHANCE [Suspect]
     Indication: ANGIOGRAM
  17. LABETALOL HCL [Concomitant]
  18. EPOGEN [Concomitant]
  19. PREDNISONE [Concomitant]
     Dosage: 5 MG (DAILY DOSE), QD, ORAL
     Route: 048
  20. FERRLECIT [Concomitant]
  21. MAGNEVIST [Suspect]
     Indication: NUCLEAR MAGNETIC RESONANCE IMAGING ABDOMINAL
     Dates: start: 20050901, end: 20050901
  22. CONTRAST MEDIA [Suspect]
     Indication: ANGIOGRAM
     Dates: start: 20040501, end: 20040501
  23. CELLCEPT [Concomitant]
  24. TOPAMAX [Concomitant]
     Dosage: 25 MG (DAILY DOSE), BID, ORAL
     Route: 048
  25. PAXIL [Concomitant]
  26. OMNISCAN [Suspect]
     Indication: PERIPHERAL ARTERY ANGIOPLASTY
  27. CALCIUM CARBONATE [Concomitant]
  28. HECTOROL [Concomitant]
  29. PROGRAF [Concomitant]
  30. FERROUS SULFATE TAB [Concomitant]
  31. REQUIP [Concomitant]
     Dosage: 0.5 MG (DAILY DOSE), BID, ORAL
     Route: 048
  32. ARANESP [Concomitant]
  33. MULTIHANCE [Suspect]
     Indication: ANGIOGRAM
  34. CONTRAST MEDIA [Suspect]
     Dates: start: 20090304, end: 20090304
  35. ALENDRONATE SODIUM [Concomitant]

REACTIONS (21)
  - NEPHROGENIC SYSTEMIC FIBROSIS [None]
  - EXTREMITY CONTRACTURE [None]
  - SKIN INDURATION [None]
  - OEDEMA [None]
  - SKIN DISORDER [None]
  - SKIN DISCOLOURATION [None]
  - SKIN EXFOLIATION [None]
  - SKIN TIGHTNESS [None]
  - MOTOR DYSFUNCTION [None]
  - SKIN HYPERTROPHY [None]
  - MUSCULAR WEAKNESS [None]
  - HYPERKERATOSIS [None]
  - DEFORMITY [None]
  - JOINT STIFFNESS [None]
  - OEDEMA PERIPHERAL [None]
  - MUSCULOSKELETAL DISORDER [None]
  - JOINT RANGE OF MOTION DECREASED [None]
  - PAIN [None]
  - MUSCULOSKELETAL STIFFNESS [None]
  - RASH [None]
  - ARTHROPATHY [None]
